FAERS Safety Report 6756264-2 (Version None)
Quarter: 2010Q2

REPORT INFORMATION
  Report Type: 
  Country: None (occurrence: None)
  Receive Date: 20100604
  Receipt Date: 20100524
  Transmission Date: 20101027
  Serious: Yes (Death, Other)
  Sender: FDA-Public Use
  Company Number: FR-GENZYME-FABR-1001251

PATIENT

DRUGS (3)
  1. FABRAZYME [Suspect]
     Indication: FABRY'S DISEASE
     Dosage: 1 MG/KG, Q2W
     Route: 042
     Dates: start: 20011127, end: 20090101
  2. FABRAZYME [Suspect]
     Dosage: UNK
     Route: 042
     Dates: start: 20090101
  3. HAEMODIALYTICS AND HAEMOFILTRATES [Concomitant]
     Indication: RENAL FAILURE CHRONIC

REACTIONS (3)
  - CARDIAC DISORDER [None]
  - GENERAL SYMPTOM [None]
  - VENTRICULAR ARRHYTHMIA [None]
